FAERS Safety Report 8079304-X (Version None)
Quarter: 2012Q1

REPORT INFORMATION
  Report Type: 
  Country: None (occurrence: None)
  Receive Date: 20120128
  Receipt Date: 20110822
  Transmission Date: 20120608
  Serious: No
  Sender: FDA-Public Use
  Company Number: US-ABBOTT-11P-163-0848350-00

PATIENT
  Age: 47 Year
  Sex: Male

DRUGS (7)
  1. HUMIRA [Suspect]
     Indication: RHEUMATOID ARTHRITIS
     Dates: start: 20090101
  2. BEPREVE [Concomitant]
     Indication: EYE ALLERGY
     Dosage: EACH EYE
  3. BUPROPION HYDROCHLORIDE [Concomitant]
     Indication: DEPRESSION
  4. HUMIRA [Suspect]
     Indication: PSORIATIC ARTHROPATHY
     Dates: start: 20040101, end: 20090101
  5. BEPREVE [Concomitant]
     Dosage: EACH EYE
  6. HUMIRA [Suspect]
     Indication: PSORIASIS
     Dates: start: 20110101
  7. BUPROPION HYDROCHLORIDE [Concomitant]
     Indication: ANXIETY

REACTIONS (2)
  - NASOPHARYNGITIS [None]
  - HEPATIC ENZYME INCREASED [None]
